FAERS Safety Report 6415480-X (Version None)
Quarter: 2009Q4

REPORT INFORMATION
  Report Type: 
  Country: None (occurrence: None)
  Receive Date: 20091027
  Receipt Date: 20091023
  Transmission Date: 20100525
  Serious: Yes (Death, Life-Threatening, Hospitalization)
  Sender: FDA-Public Use
  Company Number: JP-JNJFOC-20090401318

PATIENT
  Sex: Female

DRUGS (2)
  1. ITRIZOLE [Suspect]
     Indication: SYSTEMIC MYCOSIS
     Route: 041
  2. MODACIN [Concomitant]
     Indication: CHOLANGITIS
     Route: 041
     Dates: start: 20090325, end: 20090331

REACTIONS (8)
  - BLOOD LACTATE DEHYDROGENASE INCREASED [None]
  - C-REACTIVE PROTEIN INCREASED [None]
  - FIBRIN DEGRADATION PRODUCTS INCREASED [None]
  - HEPATIC ENZYME INCREASED [None]
  - INTERSTITIAL LUNG DISEASE [None]
  - PANCREATIC CARCINOMA [None]
  - PULMONARY ALVEOLAR HAEMORRHAGE [None]
  - SERUM FERRITIN INCREASED [None]
